FAERS Safety Report 9147411 (Version 2)
Quarter: 2013Q2

REPORT INFORMATION
  Report Type: Spontaneous
  Country: FR (occurrence: FR)
  Receive Date: 20130307
  Receipt Date: 20130514
  Transmission Date: 20140414
  Serious: Yes (Other)
  Sender: FDA-Public Use
  Company Number: FR-GLAXOSMITHKLINE-B0871673A

PATIENT
  Sex: Female

DRUGS (7)
  1. DEROXAT [Suspect]
     Indication: DEPRESSION
     Dosage: 20MG PER DAY
     Route: 048
     Dates: start: 201208
  2. SERESTA [Suspect]
     Indication: ANXIETY
     Dosage: 200MG PER DAY
     Route: 048
     Dates: start: 201208
  3. ATARAX [Suspect]
     Indication: ANXIETY
     Dosage: 150MG PER DAY
     Route: 048
     Dates: start: 201208
  4. INSULIN [Concomitant]
     Indication: DIABETES MELLITUS
     Route: 065
  5. PROZAC [Concomitant]
     Dosage: 20MG PER DAY
     Route: 065
     Dates: end: 201207
  6. VALIUM [Concomitant]
     Dosage: 30MG PER DAY
     Route: 065
     Dates: end: 201207
  7. LEXOMIL [Concomitant]
     Dosage: .75UNIT PER DAY
     Route: 065

REACTIONS (2)
  - Gestational diabetes [Unknown]
  - Exposure during pregnancy [Unknown]
